FAERS Safety Report 11093867 (Version 1)
Quarter: 2015Q2

REPORT INFORMATION
  Report Type: Report from Study
  Country: US (occurrence: US)
  Receive Date: 20150506
  Receipt Date: 20150506
  Transmission Date: 20150821
  Serious: Yes (Hospitalization, Other)
  Sender: FDA-Public Use
  Company Number: US-GILEAD-2015-0151810

PATIENT
  Age: 65 Year
  Sex: Male

DRUGS (14)
  1. LEVOTHROID [Concomitant]
     Active Substance: LEVOTHYROXINE SODIUM
  2. PROAIR HFA [Concomitant]
     Active Substance: ALBUTEROL SULFATE
  3. PRILOSEC [Concomitant]
     Active Substance: OMEPRAZOLE MAGNESIUM
  4. COUMADIN [Concomitant]
     Active Substance: WARFARIN SODIUM
  5. DULERA [Concomitant]
     Active Substance: FORMOTEROL FUMARATE DIHYDRATE\MOMETASONE FUROATE
  6. LOVENOX [Concomitant]
     Active Substance: ENOXAPARIN SODIUM
  7. ZYLOPRIM [Concomitant]
     Active Substance: ALLOPURINOL
  8. AMBRISENTAN [Suspect]
     Active Substance: AMBRISENTAN
     Indication: PULMONARY ARTERIAL HYPERTENSION
     Dosage: 5 MG, QD
     Route: 048
     Dates: start: 20150401
  9. LASIX [Concomitant]
     Active Substance: FUROSEMIDE
  10. REVATIO [Concomitant]
     Active Substance: SILDENAFIL CITRATE
  11. SYNTHROID [Concomitant]
     Active Substance: LEVOTHYROXINE SODIUM
  12. ALDACTONE [Concomitant]
     Active Substance: SPIRONOLACTONE
  13. LIPITOR [Concomitant]
     Active Substance: ATORVASTATIN CALCIUM
  14. SINGULAIR [Concomitant]
     Active Substance: MONTELUKAST SODIUM

REACTIONS (3)
  - Pulmonary embolism [Unknown]
  - Peripheral swelling [Unknown]
  - Deep vein thrombosis [Unknown]

NARRATIVE: CASE EVENT DATE: 20150408
